FAERS Safety Report 4633631-4 (Version None)
Quarter: 2005Q2

REPORT INFORMATION
  Report Type: 
  Country: None (occurrence: None)
  Receive Date: 20050325
  Receipt Date: 20041210
  Transmission Date: 20051028
  Serious: No
  Sender: FDA-Public Use
  Company Number: USA030537574

PATIENT
  Age: 69 Year
  Sex: Male

DRUGS (4)
  1. FORTEO [Suspect]
     Indication: OSTEOPOROSIS
     Dates: start: 20030501
  2. ACTONEL [Concomitant]
  3. CALCIUM GLUCONATE [Concomitant]
  4. VITAMIN CAP [Concomitant]

REACTIONS (8)
  - DECREASED APPETITE [None]
  - DIFFICULTY IN WALKING [None]
  - DIZZINESS [None]
  - HEADACHE [None]
  - INJECTION SITE PAIN [None]
  - MUSCULAR WEAKNESS [None]
  - STOMACH DISCOMFORT [None]
  - WEIGHT DECREASED [None]
